FAERS Safety Report 13641126 (Version 2)
Quarter: 2017Q2

REPORT INFORMATION
  Report Type: Spontaneous
  Country: CN (occurrence: CN)
  Receive Date: 20170612
  Receipt Date: 20170616
  Transmission Date: 20170830
  Serious: Yes (Other)
  Sender: FDA-Public Use
  Company Number: CN-ROCHE-1948716

PATIENT

DRUGS (3)
  1. ACTILYSE [Suspect]
     Active Substance: ALTEPLASE
     Route: 041
  2. HEPARIN SODIUM. [Concomitant]
     Active Substance: HEPARIN SODIUM
     Dosage: 2ML CONCENTRATION OF 12500U OF DAILY DOSE, LAST FOR 3 DAYS
     Route: 065
  3. ACTILYSE [Suspect]
     Active Substance: ALTEPLASE
     Indication: CEREBRAL INFARCTION
     Dosage: 10% THROUGH INTRAVENOUS BOLUS INJECTION, THE REST 90% THROUGH INTRAVENOUS PUMPING IN 1 HOUR, MAXIMUM
     Route: 040

REACTIONS (1)
  - Cerebral haemorrhage [Unknown]
